FAERS Safety Report 15947007 (Version 1)
Quarter: 2019Q1

REPORT INFORMATION
  Report Type: Spontaneous
  Country: US (occurrence: US)
  Receive Date: 20190121
  Receipt Date: 20190121
  Transmission Date: 20190417
  Serious: No
  Sender: FDA-Public Use
  Company Number: None

PATIENT
  Age: 54 Year
  Sex: Female

DRUGS (1)
  1. COPAXONE [Suspect]
     Active Substance: GLATIRAMER ACETATE
     Dosage: ?          OTHER FREQUENCY:UNKNOWN;?
     Route: 058
     Dates: start: 201812

REACTIONS (5)
  - Oropharyngeal pain [None]
  - Lymphadenopathy [None]
  - Urinary tract infection [None]
  - Ear infection [None]
  - Diarrhoea [None]

NARRATIVE: CASE EVENT DATE: 20190113
